FAERS Safety Report 7685207-2 (Version None)
Quarter: 2011Q3

REPORT INFORMATION
  Report Type: 
  Country: None (occurrence: None)
  Receive Date: 20110816
  Receipt Date: 20110808
  Transmission Date: 20111222
  Serious: Yes (Other)
  Sender: FDA-Public Use
  Company Number: DK-PFIZER INC-2010073940

PATIENT
  Age: 54 Year
  Sex: Female
  Weight: 65 kg

DRUGS (2)
  1. TYSABRI [Interacting]
     Indication: MULTIPLE SCLEROSIS
     Dosage: 300 MG, UNK
     Route: 042
     Dates: start: 20070817
  2. ALPRAZOLAM [Suspect]
     Dosage: 2 MG, 1X/DAY
     Route: 048
     Dates: start: 20100428, end: 20100428

REACTIONS (3)
  - HAEMATOMA [None]
  - DRUG INTERACTION [None]
  - PAIN IN EXTREMITY [None]
